FAERS Safety Report 5290525-1 (Version None)
Quarter: 2007Q2

REPORT INFORMATION
  Report Type: 
  Country: None (occurrence: None)
  Receive Date: 20070409
  Receipt Date: 20070404
  Transmission Date: 20071010
  Serious: Yes (Other)
  Sender: FDA-Public Use
  Company Number: US-BRISTOL-MYERS SQUIBB COMPANY-13738877

PATIENT
  Age: 46 Year
  Sex: Female
  Weight: 93 kg

DRUGS (1)
  1. DASATINIB [Suspect]
     Route: 048
     Dates: start: 20070220, end: 20070327

REACTIONS (3)
  - ATELECTASIS [None]
  - CHEST PAIN [None]
  - PLEURAL EFFUSION [None]
